FAERS Safety Report 20458721 (Version 1)
Quarter: 2022Q1

REPORT INFORMATION
  Report Type: Report from Study
  Country: DE (occurrence: DE)
  Receive Date: 20220211
  Receipt Date: 20220211
  Transmission Date: 20220424
  Serious: Yes (Hospitalization, Other)
  Sender: FDA-Public Use
  Company Number: DE-CELLTRION INC.-2021DE008674

PATIENT

DRUGS (8)
  1. INFLIXIMAB-DYYB [Suspect]
     Active Substance: INFLIXIMAB-DYYB
     Indication: Product used for unknown indication
     Dosage: 120 MG, Q2WEEKS
     Route: 058
     Dates: start: 20201203
  2. INFLIXIMAB-DYYB [Suspect]
     Active Substance: INFLIXIMAB-DYYB
     Dosage: 120 MG, (T5 ON VISIT DATE 14 SEP 2021)
     Route: 058
  3. ORENCIA [Concomitant]
     Active Substance: ABATACEPT
     Dosage: 125 MG
     Route: 058
     Dates: start: 202004, end: 20201116
  4. MTX [LANTAREL] [Concomitant]
     Dosage: 10 MG/BW AS BASIC THERAPY
  5. PANTOPRAZOLE SODIUM [Concomitant]
     Active Substance: PANTOPRAZOLE SODIUM
     Dosage: 1 MG/D
  6. XIPAMIDE [Concomitant]
     Active Substance: XIPAMIDE
     Dosage: 10 MG/D
  7. PREDNISOLONE [Concomitant]
     Active Substance: PREDNISOLONE
     Dosage: 1 MG/D
  8. LORAZEPAM [Concomitant]
     Active Substance: LORAZEPAM
     Dosage: 1 MG/D

REACTIONS (7)
  - Pyelonephritis [Recovered/Resolved]
  - Infection [Unknown]
  - Hypokalaemia [Recovered/Resolved]
  - Fall [Unknown]
  - Benzodiazepine drug level increased [Unknown]
  - Iron deficiency [Unknown]
  - Hyponatraemia [Recovered/Resolved]

NARRATIVE: CASE EVENT DATE: 20210220
